FAERS Safety Report 4621093-2 (Version None)
Quarter: 2005Q1

REPORT INFORMATION
  Report Type: 
  Country: None (occurrence: None)
  Receive Date: 20050328
  Receipt Date: 20050315
  Transmission Date: 20050727
  Serious: Yes (Hospitalization)
  Sender: FDA-Public Use
  Company Number: 2005AC00268

PATIENT
  Age: 64 Year
  Sex: Female
  Weight: 66 kg

DRUGS (8)
  1. FULVESTRANT [Suspect]
     Indication: BREAST CANCER METASTATIC
     Dosage: 250 MG Q4WK IM
     Route: 030
     Dates: start: 20041115, end: 20050111
  2. BUDESONIDE +FORMOTEROL (SYMBICORT) [Concomitant]
  3. CETRIZINE [Concomitant]
  4. DOCLORAZE [Concomitant]
  5. SELENIUM TRACE METAL ADDITIVE [Concomitant]
  6. CITALOPRAM [Concomitant]
  7. IMODIUM [Concomitant]
  8. PULMICORT [Concomitant]

REACTIONS (12)
  - ANOREXIA [None]
  - BREAST CANCER METASTATIC [None]
  - CRYPTOGENIC ORGANIZING PNEUMONIA [None]
  - DIARRHOEA [None]
  - DIZZINESS POSTURAL [None]
  - HEADACHE [None]
  - MALIGNANT NEOPLASM PROGRESSION [None]
  - METASTASES TO LUNG [None]
  - PULMONARY EMBOLISM [None]
  - REACTION TO MEDICAL AGENT PRESERVATIVES [None]
  - RESPIRATORY FAILURE [None]
  - THIRST [None]
